FAERS Safety Report 8439096-9 (Version None)
Quarter: 2012Q2

REPORT INFORMATION
  Report Type: 
  Country: None (occurrence: None)
  Receive Date: 20120607
  Receipt Date: 20120327
  Transmission Date: 20120825
  Serious: Yes (Hospitalization)
  Sender: FDA-Public Use
  Company Number: 2012SP016537

PATIENT
  Age: 59 Year
  Sex: Male

DRUGS (3)
  1. BOCEPREVIR (SCH-503034) [Suspect]
     Indication: HEPATITIS C
  2. PEGINTERFERON ALFA-2A [Suspect]
     Indication: HEPATITIS C
     Dosage: 180 MCG;QW;SC
     Route: 058
     Dates: start: 20111014
  3. RIBAVIRIN [Suspect]
     Indication: HEPATITIS C

REACTIONS (1)
  - THROMBOSIS [None]
